FAERS Safety Report 4881828-0 (Version None)
Quarter: 2006Q1

REPORT INFORMATION
  Report Type: 
  Country: None (occurrence: None)
  Receive Date: 20060117
  Receipt Date: 20060104
  Transmission Date: 20060701
  Serious: Yes (Death, Other)
  Sender: FDA-Public Use
  Company Number: NL-AMGEN-UK163660

PATIENT

DRUGS (3)
  1. KINERET [Suspect]
     Indication: RHEUMATOID ARTHRITIS
     Route: 058
     Dates: start: 20020101, end: 20040101
  2. METHOTREXATE [Concomitant]
     Route: 065
  3. CORTICOSTEROIDS [Concomitant]
     Route: 065

REACTIONS (14)
  - ARTHRALGIA [None]
  - BASAL CELL CARCINOMA [None]
  - CARDIAC FAILURE [None]
  - CHRONIC OBSTRUCTIVE PULMONARY DISEASE [None]
  - CONDITION AGGRAVATED [None]
  - DRUG INEFFECTIVE [None]
  - DYSPNOEA [None]
  - INFECTION [None]
  - INJECTION SITE REACTION [None]
  - PLEURAL MESOTHELIOMA [None]
  - PRURITUS [None]
  - RECTAL CANCER [None]
  - RHEUMATOID ARTHRITIS [None]
  - STAPHYLOCOCCAL SEPSIS [None]
